FAERS Safety Report 6924118-4 (Version None)
Quarter: 2010Q3

REPORT INFORMATION
  Report Type: 
  Country: None (occurrence: None)
  Receive Date: 20100813
  Receipt Date: 20100804
  Transmission Date: 20110219
  Serious: Yes (Other)
  Sender: FDA-Public Use
  Company Number: BR-ABBOTT-10P-020-0662174-00

PATIENT
  Sex: Female
  Weight: 58 kg

DRUGS (4)
  1. HUMIRA [Suspect]
     Indication: RHEUMATOID ARTHRITIS
     Route: 058
     Dates: start: 20060101, end: 20100701
  2. TRIAMCINOLONE 2MG + MELOXICAM 15MG + FAMOTIDINE  + HYDROCHLOROTHIAZIDE [Concomitant]
     Indication: RHEUMATOID ARTHRITIS
     Dosage: TRIAMCINOLONE 2MG + MELOXICAM 15MG + FAMOTIDINE  + HYDROCHLOROTHIAZIDE 12.5MG
     Route: 048
  3. METHOTREXATE [Concomitant]
     Indication: RHEUMATOID ARTHRITIS
     Route: 048
  4. RIVAROXABAN [Concomitant]
     Indication: THROMBOSIS PROPHYLAXIS
     Route: 048
     Dates: start: 20100714

REACTIONS (3)
  - OSTEOARTHRITIS [None]
  - THYROID DISORDER [None]
  - WEIGHT DECREASED [None]
